FAERS Safety Report 4372025-6 (Version None)
Quarter: 2004Q2

REPORT INFORMATION
  Report Type: 
  Country: None (occurrence: None)
  Receive Date: 20040602
  Receipt Date: 20040517
  Transmission Date: 20050107
  Serious: Yes (Death, Other)
  Sender: FDA-Public Use
  Company Number: TOS-000623

PATIENT
  Age: 75 Year
  Sex: Female

DRUGS (7)
  1. TOSITUMOMAB, IODINE I 131 TOSITUMOMAB (TOSITUMOMAB (TOSITUMOMAB, IODIN [Suspect]
     Indication: NON-HODGKIN'S LYMPHOMA
     Dosage: TOSITUMOM  TOSITUMOMAB 35MG/4.49 MCI, INTRAVENOUS,450 MG, INTRAVENOUS; I 131 35MG/47.747 MCI, INTRAV
     Dates: start: 19990707, end: 19990707
  2. TOSITUMOMAB, IODINE I 131 TOSITUMOMAB (TOSITUMOMAB (TOSITUMOMAB, IODIN [Suspect]
     Indication: NON-HODGKIN'S LYMPHOMA
     Dosage: TOSITUMOM  TOSITUMOMAB 35MG/4.49 MCI, INTRAVENOUS,450 MG, INTRAVENOUS; I 131 35MG/47.747 MCI, INTRAV
     Dates: start: 19990716, end: 19990716
  3. TOSITUMOMAB, IODINE I 131 TOSITUMOMAB (TOSITUMOMAB (TOSITUMOMAB, IODIN [Suspect]
     Indication: NON-HODGKIN'S LYMPHOMA
     Dosage: TOSITUMOM  TOSITUMOMAB 35MG/4.49 MCI, INTRAVENOUS,450 MG, INTRAVENOUS; I 131 35MG/47.747 MCI, INTRAV
     Dates: start: 19990716, end: 19990716
  4. TOSITUMOMAB, IODINE I 131 TOSITUMOMAB (TOSITUMOMAB, IODINE I 131 TOSIT [Suspect]
  5. TOSITUMOMAB, IODINE I 131 TOSITUMOMAB) STERILE LIQUID [Suspect]
  6. TOSITUMOMAB [Suspect]
  7. TOSITUMOMAB [Suspect]

REACTIONS (46)
  - ABDOMINAL PAIN UPPER [None]
  - ABDOMINAL RIGIDITY [None]
  - ACUTE MYELOID LEUKAEMIA [None]
  - ANAEMIA [None]
  - ASTHENIA [None]
  - ATELECTASIS [None]
  - BLOOD LACTATE DEHYDROGENASE INCREASED [None]
  - BODY TEMPERATURE DECREASED [None]
  - BONE MARROW DEPRESSION [None]
  - BONE PAIN [None]
  - BRADYCARDIA [None]
  - CARDIAC FAILURE CONGESTIVE [None]
  - CARDIOMEGALY [None]
  - CHILLS [None]
  - CHROMOSOME ABNORMALITY [None]
  - DECREASED APPETITE [None]
  - DILATATION INTRAHEPATIC DUCT ACQUIRED [None]
  - DRUG EFFECT DECREASED [None]
  - DRUG INEFFECTIVE [None]
  - DYSPNOEA [None]
  - FEELING COLD [None]
  - FLUID OVERLOAD [None]
  - FUNGAL INFECTION [None]
  - HAEMOTHORAX [None]
  - HEADACHE [None]
  - INFUSION RELATED REACTION [None]
  - JAW DISORDER [None]
  - LIVER PALPABLE SUBCOSTAL [None]
  - LOOSE STOOLS [None]
  - LUNG CONSOLIDATION [None]
  - MALIGNANT NEOPLASM PROGRESSION [None]
  - MOUTH ULCERATION [None]
  - MYELODYSPLASTIC SYNDROME [None]
  - NAUSEA [None]
  - NON-HODGKIN'S LYMPHOMA STAGE III [None]
  - OEDEMA PERIPHERAL [None]
  - PANCREATIC DISORDER [None]
  - PANCYTOPENIA [None]
  - PLEURAL EFFUSION [None]
  - PULMONARY OEDEMA [None]
  - PYREXIA [None]
  - RESPIRATORY DISTRESS [None]
  - SPINAL DEFORMITY [None]
  - SUBCLAVIAN VEIN THROMBOSIS [None]
  - SWELLING [None]
  - TOOTHACHE [None]
